FAERS Safety Report 26207613 (Version 1)
Quarter: 2025Q4

REPORT INFORMATION
  Report Type: Report from Study
  Country: US (occurrence: US)
  Receive Date: 20251229
  Receipt Date: 20251229
  Transmission Date: 20260118
  Serious: No
  Sender: SANDOZ
  Company Number: US-SANDOZ-SDZ2025US019284

PATIENT
  Sex: Male

DRUGS (3)
  1. OMNITROPE [Suspect]
     Active Substance: SOMATROPIN
     Indication: Short stature
     Dosage: 5.8
  2. OMNITROPE [Suspect]
     Active Substance: SOMATROPIN
     Dosage: 2.5 MG, QD
  3. OMNITROPE [Suspect]
     Active Substance: SOMATROPIN
     Dosage: 2.5 MG, OTHER (6 DAYS A WEEK)

REACTIONS (3)
  - Circumstance or information capable of leading to medication error [Unknown]
  - Product dose omission issue [Unknown]
  - Device leakage [Unknown]
